FAERS Safety Report 4800345-7 (Version None)
Quarter: 2005Q4

REPORT INFORMATION
  Report Type: 
  Country: None (occurrence: None)
  Receive Date: 20051012
  Receipt Date: 20051012
  Transmission Date: 20060501
  Serious: Yes (Other)
  Sender: FDA-Public Use
  Company Number: None

PATIENT
  Age: 75 Year
  Sex: Male
  Weight: 75.7507 kg

DRUGS (8)
  1. TAXOTERE [Suspect]
     Indication: BLADDER CANCER
     Dosage: 75 MG/M2
     Dates: start: 20050819
  2. TAXOTERE [Suspect]
     Indication: METASTASIS
     Dosage: 75 MG/M2
     Dates: start: 20050819
  3. TAXOTERE [Suspect]
     Indication: BLADDER CANCER
     Dosage: 75 MG/M2
     Dates: start: 20050912
  4. TAXOTERE [Suspect]
     Indication: METASTASIS
     Dosage: 75 MG/M2
     Dates: start: 20050912
  5. GLEEVEC [Suspect]
     Dosage: 600 MG
     Dates: start: 20050815, end: 20050820
  6. GLEEVEC [Suspect]
     Dosage: 600 MG
     Dates: start: 20050908, end: 20050913
  7. AVALIDE [Concomitant]
  8. NASONEX [Concomitant]

REACTIONS (5)
  - BLOOD DISORDER [None]
  - DRUG TOXICITY [None]
  - NEUTROPHIL COUNT DECREASED [None]
  - PYREXIA [None]
  - WHITE BLOOD CELL COUNT DECREASED [None]
